FAERS Safety Report 6312461-1 (Version None)
Quarter: 2009Q3

REPORT INFORMATION
  Report Type: 
  Country: None (occurrence: None)
  Receive Date: 20090813
  Receipt Date: 20090804
  Transmission Date: 20100115
  Serious: Yes (Life-Threatening, Hospitalization, Other)
  Sender: FDA-Public Use
  Company Number: 2009AL005154

PATIENT
  Age: 45 Year
  Sex: Female

DRUGS (5)
  1. CITALOPRAM HYDROBROMIDE [Suspect]
     Indication: DEPRESSION
     Dosage: 40 MG; PO
     Route: 048
     Dates: start: 20090501, end: 20090707
  2. FLUOXETINE [Concomitant]
  3. CO-CODAMOL [Concomitant]
  4. ZOPICLONE [Concomitant]
  5. CETIRIZINE HCL [Concomitant]

REACTIONS (3)
  - HALLUCINATION [None]
  - HEPATITIS ACUTE [None]
  - HEPATORENAL SYNDROME [None]
